FAERS Safety Report 9636431 (Version 1)
Quarter: 2013Q4

REPORT INFORMATION
  Report Type: Report from Study
  Country: US (occurrence: US)
  Receive Date: 20131021
  Receipt Date: 20131021
  Transmission Date: 20140711
  Serious: Yes (Hospitalization)
  Sender: FDA-Public Use
  Company Number: US-MERCK-1310USA006080

PATIENT
  Age: 57 Year
  Sex: Male
  Weight: 77.2 kg

DRUGS (16)
  1. PEGINTERFERON ALFA-2B [Suspect]
     Indication: HEPATITIS C
     Dosage: 120 MICROGRAM, QW
     Route: 058
     Dates: start: 20131007
  2. PEGINTERFERON ALFA-2B [Suspect]
     Indication: HIV INFECTION
  3. RIBAVIRIN [Suspect]
     Indication: HEPATITIS C
     Dosage: 1000 MG, QD; DOSING SCHEDULE WAS 400 MG IN THE AM AND 600MG IN THE PM
     Route: 048
     Dates: start: 20131007
  4. RIBAVIRIN [Suspect]
     Indication: HIV INFECTION
  5. IBUPROFEN [Concomitant]
     Dosage: 600 MG, PRN
     Route: 048
     Dates: start: 20051114
  6. OMEGA-3 [Concomitant]
     Dosage: 2 MG, BID
     Route: 048
     Dates: start: 20090708
  7. ALDARA [Concomitant]
     Dosage: ^MWF^
     Route: 061
     Dates: start: 20091111
  8. RANITIDINE [Concomitant]
     Dosage: 150 MG, BID
     Route: 048
     Dates: start: 20120101
  9. FENOFIBRATE [Concomitant]
     Dosage: 100 MG, QD
     Route: 048
     Dates: start: 20120101
  10. PRAVASTATIN SODIUM [Concomitant]
     Dosage: 20 MG, HS
     Route: 048
     Dates: start: 20120101
  11. ISENTRESS [Concomitant]
     Dosage: 400 MG, BID
     Route: 048
     Dates: start: 20100223
  12. TENOFOVIR [Concomitant]
     Dosage: 300 MG, QD
     Route: 048
     Dates: start: 20130108
  13. ABACAVIR [Concomitant]
     Dosage: 600 MG, QD
     Route: 048
     Dates: start: 20130108
  14. METFORMIN [Concomitant]
     Dosage: 1000 MG, QD
     Route: 048
     Dates: start: 20130226
  15. NAPROXEN SODIUM [Concomitant]
     Dosage: 220 MG, PRN
     Route: 048
     Dates: start: 20131007
  16. ASPIRIN [Concomitant]
     Dosage: 82 MG, QD
     Route: 048
     Dates: start: 20130612

REACTIONS (1)
  - Non-cardiac chest pain [Recovered/Resolved]
